FAERS Safety Report 11580173 (Version 1)
Quarter: 2015Q3

REPORT INFORMATION
  Report Type: Spontaneous
  Country: SE (occurrence: SE)
  Receive Date: 20150930
  Receipt Date: 20150930
  Transmission Date: 20151125
  Serious: Yes (Death, Hospitalization, Other)
  Sender: FDA-Public Use
  Company Number: SE-GILEAD-2015-0174175

PATIENT
  Age: 60 Year
  Sex: Male

DRUGS (20)
  1. REBETOL [Suspect]
     Active Substance: RIBAVIRIN
     Dosage: 400 MG, BID
     Route: 048
     Dates: start: 20150610, end: 20150708
  2. REBETOL [Suspect]
     Active Substance: RIBAVIRIN
     Dosage: UNK, BID
     Route: 048
     Dates: start: 20150709, end: 20150812
  3. NOVOMIX [Concomitant]
     Active Substance: INSULIN ASPART
  4. MEROPENEM ANHYDROUS [Concomitant]
     Active Substance: MEROPENEM ANHYDROUS
  5. OMEPRAZOLE. [Concomitant]
     Active Substance: OMEPRAZOLE
  6. ONDANSETRON [Concomitant]
     Active Substance: ONDANSETRON
  7. XYLOPROCT                          /02344701/ [Concomitant]
  8. LAXOBERAL [Concomitant]
     Active Substance: SODIUM PICOSULFATE
  9. WARAN [Concomitant]
     Active Substance: WARFARIN SODIUM
     Dates: start: 201507, end: 20150816
  10. PIPERACILLIN/TAZOBACTAM [Concomitant]
     Active Substance: PIPERACILLIN SODIUM\TAZOBACTAM SODIUM
  11. DACLATASVIR DIHYDROCHLORIDE [Suspect]
     Active Substance: DACLATASVIR DIHYDROCHLORIDE
     Indication: HEPATITIS C
     Dosage: 60 MG, QD
     Route: 048
     Dates: start: 20150527, end: 20150905
  12. SPIRONOLACTONE. [Concomitant]
     Active Substance: SPIRONOLACTONE
  13. SOVALDI [Suspect]
     Active Substance: SOFOSBUVIR
     Indication: HEPATITIS C
     Dosage: 400 MG, QD
     Route: 048
     Dates: start: 20150527, end: 20150905
  14. REBETOL [Suspect]
     Active Substance: RIBAVIRIN
     Dosage: 400 MG, BID
     Route: 048
     Dates: start: 20150813, end: 20150816
  15. LAKTULOS [Concomitant]
  16. REBETOL [Suspect]
     Active Substance: RIBAVIRIN
     Indication: HEPATITIS C
     Dosage: 600 MG, BID
     Route: 048
     Dates: start: 20150527, end: 20150609
  17. PRIMPERAN [Concomitant]
     Active Substance: METOCLOPRAMIDE HYDROCHLORIDE
  18. FRAGMIN [Concomitant]
     Active Substance: DALTEPARIN SODIUM
  19. FURIX [Concomitant]
     Active Substance: FUROSEMIDE
  20. INDERAL [Concomitant]
     Active Substance: PROPRANOLOL HYDROCHLORIDE

REACTIONS (1)
  - Hepatic cirrhosis [Fatal]

NARRATIVE: CASE EVENT DATE: 20150816
